FAERS Safety Report 6914016-4 (Version None)
Quarter: 2010Q3

REPORT INFORMATION
  Report Type: 
  Country: None (occurrence: None)
  Receive Date: 20100809
  Receipt Date: 20100727
  Transmission Date: 20110219
  Serious: Yes (Other)
  Sender: FDA-Public Use
  Company Number: PHHY2010BE49006

PATIENT
  Sex: Female

DRUGS (7)
  1. VIVELLE-DOT [Suspect]
     Dosage: 25
     Route: 062
     Dates: start: 20091201
  2. ASAFLOW [Concomitant]
  3. AMLOR [Concomitant]
  4. CORUNO [Concomitant]
  5. COZAAR [Concomitant]
  6. PROGOR [Concomitant]
  7. SELOZOK [Concomitant]

REACTIONS (2)
  - ANGINA PECTORIS [None]
  - CARDIAC DISORDER [None]
